FAERS Safety Report 8364030-X (Version None)
Quarter: 2012Q2

REPORT INFORMATION
  Report Type: 
  Country: None (occurrence: None)
  Receive Date: 20120516
  Receipt Date: 20120221
  Transmission Date: 20120825
  Serious: No
  Sender: FDA-Public Use
  Company Number: US-ALEXION-A201200322

PATIENT
  Sex: Male

DRUGS (1)
  1. SOLIRIS [Suspect]
     Indication: PAROXYSMAL NOCTURNAL HAEMOGLOBINURIA
     Dosage: UNK
     Route: 042

REACTIONS (9)
  - BODY TEMPERATURE INCREASED [None]
  - SPUTUM DISCOLOURED [None]
  - PRODUCTIVE COUGH [None]
  - SNEEZING [None]
  - RHINORRHOEA [None]
  - NASOPHARYNGITIS [None]
  - PULMONARY CONGESTION [None]
  - OROPHARYNGEAL PAIN [None]
  - FATIGUE [None]
